FAERS Safety Report 17045951 (Version 1)
Quarter: 2019Q4

REPORT INFORMATION
  Report Type: Spontaneous
  Country: US (occurrence: US)
  Receive Date: 20191119
  Receipt Date: 20191119
  Transmission Date: 20200122
  Serious: No
  Sender: FDA-Public Use
  Company Number: US-CIPLA LTD.-2019US07088

PATIENT

DRUGS (1)
  1. DICLOFENAC [Suspect]
     Active Substance: DICLOFENAC
     Indication: SPINAL OSTEOARTHRITIS
     Dosage: UNK
     Route: 061

REACTIONS (2)
  - Off label use [Unknown]
  - Product use in unapproved indication [Unknown]
